FAERS Safety Report 24196294 (Version 1)
Quarter: 2024Q3

REPORT INFORMATION
  Report Type: Spontaneous
  Country: US (occurrence: None)
  Receive Date: 20240809
  Receipt Date: 20240809
  Transmission Date: 20241017
  Serious: No
  Sender: BIONPHARMA
  Company Number: US-Bion-013632

PATIENT
  Sex: Male

DRUGS (1)
  1. IBUPROFEN [Suspect]
     Active Substance: IBUPROFEN
     Indication: Product used for unknown indication

REACTIONS (11)
  - Eye pain [Unknown]
  - Somnolence [Unknown]
  - Burning sensation [Unknown]
  - Burning sensation [Unknown]
  - Oedema peripheral [Unknown]
  - Hypertension [Unknown]
  - Eye irritation [Unknown]
  - Eye irritation [Unknown]
  - Pain [Unknown]
  - Hypersensitivity [Unknown]
  - Intentional overdose [Unknown]
